FAERS Safety Report 6509395-6 (Version None)
Quarter: 2009Q4

REPORT INFORMATION
  Report Type: 
  Country: None (occurrence: None)
  Receive Date: 20091218
  Receipt Date: 20091218
  Transmission Date: 20100525
  Serious: Yes (Other)
  Sender: FDA-Public Use
  Company Number: None

PATIENT
  Sex: Female
  Weight: 74 kg

DRUGS (11)
  1. ALBUMIN (HUMAN) [Suspect]
     Dosage: 1.875G/KG ONCE DAILY X7DAY
     Dates: start: 20091212, end: 20091212
  2. NIMODIPINE [Concomitant]
  3. BISACODYL [Concomitant]
  4. DOCUSATE [Concomitant]
  5. TYLENOL (CAPLET) [Concomitant]
  6. LARAZEPAM [Concomitant]
  7. MORPHINE [Concomitant]
  8. GRAVOL TAB [Concomitant]
  9. ONDANSETRON [Concomitant]
  10. TYLENOL (CAPLET) [Concomitant]
  11. ELECTROLYTES REPLACEMENT [Concomitant]

REACTIONS (2)
  - NO THERAPEUTIC RESPONSE [None]
  - RESPIRATORY DISTRESS [None]
